FAERS Safety Report 9375857 (Version 3)
Quarter: 2013Q4

REPORT INFORMATION
  Report Type: Spontaneous
  Country: FR (occurrence: FR)
  Receive Date: 20130628
  Receipt Date: 20131212
  Transmission Date: 20140711
  Serious: Yes (Hospitalization)
  Sender: FDA-Public Use
  Company Number: FR-PFIZER INC-2013189400

PATIENT
  Age: 58 Year
  Sex: Male

DRUGS (8)
  1. AMLODIPINE BESILATE [Suspect]
     Indication: RENAL DISORDER
     Dosage: 1 DF, 1X/DAY (IN THE EVENING)
     Dates: start: 2011, end: 2013
  2. FUROSEMIDE [Suspect]
     Indication: RENAL DISORDER
     Dosage: UNK
     Dates: start: 2011, end: 2013
  3. PRAVASTATINE ARROW [Suspect]
     Indication: RENAL DISORDER
     Dosage: 20 MG, 1X/DAY (IN THE EVENING)
     Dates: start: 2011, end: 2013
  4. IRBESARTAN BIOGARAN [Suspect]
     Dosage: UNK
  5. BURINEX [Suspect]
     Dosage: UNK
     Dates: start: 2013
  6. MESTINON [Concomitant]
     Dosage: 3 DF, 1X/DAY
  7. COUMADINE [Concomitant]
     Indication: INTERNATIONAL NORMALISED RATIO ABNORMAL
  8. PANTOPRAZOLE [Concomitant]
     Dosage: 20 MG, 1X/DAY (IN THE EVENING)

REACTIONS (3)
  - Off label use [Unknown]
  - Pruritus [Recovering/Resolving]
  - Hypersensitivity vasculitis [Recovering/Resolving]
